FAERS Safety Report 9309226 (Version 1)
Quarter: 2013Q2

REPORT INFORMATION
  Report Type: Spontaneous
  Country: US (occurrence: US)
  Receive Date: 20130525
  Receipt Date: 20130525
  Transmission Date: 20140414
  Serious: No
  Sender: FDA-Public Use
  Company Number: US-BRISTOL-MYERS SQUIBB COMPANY-18580464

PATIENT
  Age: 53 Year
  Sex: Male

DRUGS (4)
  1. BYDUREON 2MG VIAL + SYRINGE [Suspect]
     Route: 058
     Dates: start: 20121210
  2. METFORMIN [Concomitant]
  3. LANTUS [Concomitant]
  4. APIDRA [Concomitant]

REACTIONS (2)
  - Injection site mass [Not Recovered/Not Resolved]
  - Off label use [Unknown]
